FAERS Safety Report 25715460 (Version 1)
Quarter: 2025Q3

REPORT INFORMATION
  Report Type: Spontaneous
  Country: US (occurrence: None)
  Receive Date: 20250821
  Receipt Date: 20250821
  Transmission Date: 20251021
  Serious: Yes (Hospitalization)
  Sender: FDA-CTU
  Company Number: None

PATIENT
  Age: 79 Year
  Sex: Female
  Weight: 74.25 kg

DRUGS (1)
  1. ANASTROZOLE [Suspect]
     Active Substance: ANASTROZOLE
     Indication: Neoplasm malignant
     Dates: start: 20200701, end: 20250630

REACTIONS (3)
  - Back pain [None]
  - Abdominal pain lower [None]
  - Fibromuscular dysplasia [None]

NARRATIVE: CASE EVENT DATE: 20250728
